FAERS Safety Report 4527514-8 (Version None)
Quarter: 2004Q4

REPORT INFORMATION
  Report Type: 
  Country: None (occurrence: None)
  Receive Date: 20041123
  Receipt Date: 20040611
  Transmission Date: 20050328
  Serious: Yes (Other)
  Sender: FDA-Public Use
  Company Number: 2004039562

PATIENT
  Age: 57 Year
  Sex: Female
  Weight: 84.8226 kg

DRUGS (6)
  1. LIPITOR [Suspect]
     Indication: HYPERLIPIDAEMIA
     Dosage: 10 MG (10 MG, 1 IN 1 D), ORAL
     Route: 048
     Dates: end: 20030801
  2. ALL OTHER THERAPEUTIC PRODUCTS (ALL OTHER THERAPEUTIC PRODUCTS) [Concomitant]
  3. DESLORATADINE (DESLORATADINE) [Concomitant]
  4. SUMATRIPTAN SUCCINATE (SUMATRIPTANT SUCCINATE) [Concomitant]
  5. GLICLAZIDE (GLICLAZIDE) [Concomitant]
  6. ESTROGENS (ESTROGENS) [Concomitant]

REACTIONS (6)
  - ASTHENIA [None]
  - BIOPSY MUSCLE [None]
  - BLOOD CREATINE PHOSPHOKINASE INCREASED [None]
  - HEPATIC ENZYME INCREASED [None]
  - MYOSITIS [None]
  - PAIN [None]
